FAERS Safety Report 13319577 (Version 1)
Quarter: 2017Q1

REPORT INFORMATION
  Report Type: Report from Study
  Country: None (occurrence: US)
  Receive Date: 20170309
  Receipt Date: 20170309
  Transmission Date: 20170428
  Serious: Yes (Hospitalization, Other)
  Sender: FDA-Public Use
  Company Number: US-ABBVIE-17K-163-1832328-00

PATIENT
  Age: 23 Year
  Sex: Male
  Weight: 63.56 kg

DRUGS (3)
  1. HUMIRA [Suspect]
     Active Substance: ADALIMUMAB
     Route: 058
     Dates: start: 20161115, end: 20161115
  2. HUMIRA [Suspect]
     Active Substance: ADALIMUMAB
     Indication: COLITIS ULCERATIVE
     Route: 058
     Dates: start: 20161108, end: 20161108
  3. HUMIRA [Suspect]
     Active Substance: ADALIMUMAB
     Route: 058
     Dates: start: 20161122, end: 20161208

REACTIONS (7)
  - Vomiting [Recovered/Resolved]
  - Colitis [Recovered/Resolved]
  - Weight decreased [Recovering/Resolving]
  - Drug ineffective [Unknown]
  - Gastrointestinal haemorrhage [Recovered/Resolved]
  - Abdominal pain [Recovered/Resolved]
  - Colitis ulcerative [Recovered/Resolved]

NARRATIVE: CASE EVENT DATE: 2016
